FAERS Safety Report 6461856-4 (Version None)
Quarter: 2009Q4

REPORT INFORMATION
  Report Type: 
  Country: None (occurrence: None)
  Receive Date: 20091130
  Receipt Date: 20091119
  Transmission Date: 20100525
  Serious: Yes (Other)
  Sender: FDA-Public Use
  Company Number: PHHY2009BR51439

PATIENT
  Age: 49 Year
  Sex: Female
  Weight: 65 kg

DRUGS (2)
  1. CODATEN [Suspect]
     Indication: ABDOMINAL PAIN
     Dosage: 50 MG, TID
     Route: 048
     Dates: start: 20091118
  2. CIPROFLOXACIN [Concomitant]
     Indication: ABDOMINAL PAIN
     Dosage: 2 TABLETS DAILY
     Route: 048
     Dates: start: 20091118

REACTIONS (4)
  - HYPOAESTHESIA [None]
  - LETHARGY [None]
  - PALPITATIONS [None]
  - VOMITING [None]
